FAERS Safety Report 25518051 (Version 2)
Quarter: 2025Q3

REPORT INFORMATION
  Report Type: Spontaneous
  Country: CA (occurrence: CA)
  Receive Date: 20250704
  Receipt Date: 20250803
  Transmission Date: 20251021
  Serious: Yes (Hospitalization, Other)
  Sender: ALEXION PHARMACEUTICALS
  Company Number: CA-AstraZeneca-2021A440890

PATIENT
  Age: 60 Year
  Sex: Male

DRUGS (5)
  1. ROSUVASTATIN [Suspect]
     Active Substance: ROSUVASTATIN
     Indication: Product used for unknown indication
  2. SANDOSTATIN LAR DEPOT [Suspect]
     Active Substance: OCTREOTIDE ACETATE
     Indication: Small intestine carcinoma
     Dosage: 30 MILLIGRAM, QD
  3. SANDOSTATIN LAR DEPOT [Suspect]
     Active Substance: OCTREOTIDE ACETATE
     Dosage: 60 MG, QMO EVERY 4 WEEKS
     Dates: start: 20140319
  4. JARDIANCE [Concomitant]
     Active Substance: EMPAGLIFLOZIN
     Indication: Product used for unknown indication
     Dosage: 25 MILLIGRAM, 1 EVERY DAY
  5. PERINDOPRIL [Concomitant]
     Active Substance: PERINDOPRIL
     Indication: Product used for unknown indication

REACTIONS (24)
  - Injection site pain [Recovering/Resolving]
  - Blood pressure increased [Unknown]
  - Blood glucose increased [Unknown]
  - Body temperature decreased [Unknown]
  - Cough [Recovered/Resolved]
  - Malaise [Not Recovered/Not Resolved]
  - Headache [Unknown]
  - Diarrhoea [Unknown]
  - White blood cell count increased [Unknown]
  - Hepatic enzyme increased [Unknown]
  - Pruritus [Not Recovered/Not Resolved]
  - Nasal congestion [Unknown]
  - Nausea [Recovering/Resolving]
  - Needle issue [Unknown]
  - Abdominal pain [Recovering/Resolving]
  - Underdose [Unknown]
  - Wrong technique in product usage process [Unknown]
  - Injection site haemorrhage [Recovered/Resolved]
  - Abdominal pain upper [Unknown]
  - Fatigue [Unknown]
  - Malignant neoplasm progression [Unknown]
  - Small intestine carcinoma [Unknown]
  - Vomiting [Unknown]
  - Weight increased [Unknown]
